FAERS Safety Report 25005790 (Version 1)
Quarter: 2025Q1

REPORT INFORMATION
  Report Type: Spontaneous
  Country: JP (occurrence: JP)
  Receive Date: 20250224
  Receipt Date: 20250224
  Transmission Date: 20250408
  Serious: Yes (Hospitalization)
  Sender: OTSUKA
  Company Number: JP-OTSUKA-2025_002258

PATIENT
  Age: 67 Year
  Sex: Female

DRUGS (1)
  1. REXULTI [Suspect]
     Active Substance: BREXPIPRAZOLE
     Indication: Depression
     Route: 048

REACTIONS (1)
  - Fibula fracture [Unknown]
